FAERS Safety Report 7892422-1 (Version None)
Quarter: 2011Q4

REPORT INFORMATION
  Report Type: 
  Country: None (occurrence: None)
  Receive Date: 20111102
  Receipt Date: 20111019
  Transmission Date: 20120403
  Serious: Yes (Other)
  Sender: FDA-Public Use
  Company Number: MC201100519

PATIENT

DRUGS (1)
  1. ANGIOMAX [Suspect]
     Indication: PERCUTANEOUS CORONARY INTERVENTION
     Dosage: 1/2 BOLUS DOSE

REACTIONS (3)
  - DEVICE OCCLUSION [None]
  - COAGULATION TIME SHORTENED [None]
  - DRUG INEFFECTIVE [None]
